FAERS Safety Report 13360734 (Version 2)
Quarter: 2017Q1

REPORT INFORMATION
  Report Type: Report from Study
  Country: US (occurrence: US)
  Receive Date: 20170322
  Receipt Date: 20170327
  Transmission Date: 20170429
  Serious: Yes (Hospitalization)
  Sender: FDA-Public Use
  Company Number: US-VIFOR (INTERNATIONAL) INC.-VIT-2017-02893

PATIENT
  Age: 78 Year
  Sex: Male

DRUGS (1)
  1. VELTASSA [Suspect]
     Active Substance: PATIROMER
     Indication: PRODUCT USED FOR UNKNOWN INDICATION
     Route: 065
     Dates: start: 201702, end: 201702

REACTIONS (6)
  - Constipation [Unknown]
  - Red blood cell count decreased [Unknown]
  - Bowel movement irregularity [Unknown]
  - Product quality issue [Unknown]
  - Diverticulitis [Unknown]
  - Haemorrhage [Unknown]

NARRATIVE: CASE EVENT DATE: 201702
